FAERS Safety Report 25435521 (Version 2)
Quarter: 2025Q3

REPORT INFORMATION
  Report Type: Spontaneous
  Country: US (occurrence: US)
  Receive Date: 20250613
  Receipt Date: 20250717
  Transmission Date: 20251021
  Serious: Yes (Other)
  Sender: NOVO NORDISK
  Company Number: US-NOVOPROD-1455382

PATIENT
  Sex: Male

DRUGS (1)
  1. NOVOLOG MIX 70/30 [Suspect]
     Active Substance: INSULIN ASPART
     Indication: Product used for unknown indication

REACTIONS (6)
  - Subdural haematoma [Recovered/Resolved]
  - Subdural haemorrhage [Recovered/Resolved]
  - Renal cancer [Recovered/Resolved]
  - Fall [Unknown]
  - Fall [Unknown]
  - Head injury [Unknown]
